FAERS Safety Report 4820881-7 (Version None)
Quarter: 2005Q4

REPORT INFORMATION
  Report Type: 
  Country: None (occurrence: None)
  Receive Date: 20051104
  Receipt Date: 20051104
  Transmission Date: 20060501
  Serious: No
  Sender: FDA-Public Use
  Company Number: None

PATIENT

DRUGS (2)
  1. HALOPERIDOL [Suspect]
  2. HALOPERIDOL DECANOATE [Suspect]

REACTIONS (1)
  - MEDICATION ERROR [None]
